FAERS Safety Report 21556401 (Version 2)
Quarter: 2022Q4

REPORT INFORMATION
  Report Type: Spontaneous
  Country: KR (occurrence: KR)
  Receive Date: 20221104
  Receipt Date: 20221128
  Transmission Date: 20230113
  Serious: Yes (Other)
  Sender: FDA-Public Use
  Company Number: KR-MYLANLABS-2022M1121708

PATIENT
  Age: 35 Year
  Sex: Female
  Weight: 49.05 kg

DRUGS (10)
  1. LORAZEPAM [Suspect]
     Active Substance: LORAZEPAM
     Dosage: 2 MILLIGRAM, QD
     Route: 065
     Dates: start: 20210210, end: 20210210
  2. LYRICA [Concomitant]
     Active Substance: PREGABALIN
     Indication: Insomnia
     Dosage: 1 DOSAGE FORM, QD
     Route: 065
     Dates: start: 20210114
  3. ZOLPIDEM TARTRATE [Concomitant]
     Active Substance: ZOLPIDEM TARTRATE
     Dosage: 1 DOSAGE FORM, QD
     Route: 065
     Dates: start: 20210129, end: 20210210
  4. PIPERACILLIN SODIUM\TAZOBACTAM SODIUM [Concomitant]
     Active Substance: PIPERACILLIN SODIUM\TAZOBACTAM SODIUM
     Indication: Insomnia
     Dosage: 1 DOSAGE FORM, QD
     Route: 065
     Dates: start: 20210129, end: 20210219
  5. MORPHINE SULFATE [Concomitant]
     Active Substance: MORPHINE SULFATE
     Dosage: 100 MILLIGRAM, QD
     Route: 065
     Dates: start: 20210204
  6. TRAMADOL HYDROCHLORIDE [Concomitant]
     Active Substance: TRAMADOL HYDROCHLORIDE
     Dosage: 1 DOSAGE FORM, QD
     Route: 065
     Dates: start: 20210128
  7. KETOROLAC TROMETHAMINE [Concomitant]
     Active Substance: KETOROLAC TROMETHAMINE
     Dosage: 30 MILLIGRAM, QD
     Route: 065
     Dates: start: 20210210, end: 20210210
  8. MAGNESIUM SULFATE [Concomitant]
     Active Substance: MAGNESIUM SULFATE
     Dosage: 2 DOSAGE FORM, QD
     Route: 065
     Dates: start: 20210210, end: 20210210
  9. FENTANYL [Concomitant]
     Active Substance: FENTANYL
     Dosage: 1 DOSAGE FORM, TID
     Route: 065
     Dates: start: 20210210
  10. FENTANYL CITRATE [Concomitant]
     Active Substance: FENTANYL CITRATE
     Dosage: 1 DOSAGE FORM, QD
     Route: 065
     Dates: start: 20190129

REACTIONS (2)
  - Delirium [Recovered/Resolved]
  - Off label use [Unknown]

NARRATIVE: CASE EVENT DATE: 20210114
